FAERS Safety Report 10950085 (Version 1)
Quarter: 2015Q1

REPORT INFORMATION
  Report Type: Spontaneous
  Country: SE (occurrence: SE)
  Receive Date: 20150324
  Receipt Date: 20150324
  Transmission Date: 20150721
  Serious: Yes (Other)
  Sender: FDA-Public Use
  Company Number: SE-PFIZER INC-2015100144

PATIENT
  Sex: Female

DRUGS (1)
  1. ZOLOFT [Suspect]
     Active Substance: SERTRALINE HYDROCHLORIDE
     Dosage: UNK

REACTIONS (16)
  - Rash [Unknown]
  - Anosmia [Unknown]
  - Dysphagia [Unknown]
  - Poor quality sleep [Unknown]
  - Fatigue [Unknown]
  - Pruritus genital [Unknown]
  - Depression [Unknown]
  - Anger [Unknown]
  - Acne [Unknown]
  - Vaginal discharge [Unknown]
  - Headache [Unknown]
  - Dizziness [Unknown]
  - Menstruation irregular [Unknown]
  - Abnormal dreams [Unknown]
  - Anxiety [Unknown]
  - Sedation [Unknown]
